FAERS Safety Report 9132079 (Version 1)
Quarter: 2013Q1

REPORT INFORMATION
  Report Type: Spontaneous
  Country: US (occurrence: US)
  Receive Date: 20130301
  Receipt Date: 20130301
  Transmission Date: 20140127
  Serious: No
  Sender: FDA-Public Use
  Company Number: US-B.I. PHARMACEUTICALS,INC./RIDGEFIELD-2013-BI-05019BP

PATIENT
  Age: 83 Year
  Sex: Male
  Weight: 75 kg

DRUGS (7)
  1. PRADAXA [Suspect]
     Indication: ATRIAL FIBRILLATION
     Dosage: 300 MG
     Route: 048
     Dates: start: 20121120
  2. VITAMIN D [Concomitant]
     Route: 048
  3. METOPROLOL [Concomitant]
     Route: 048
  4. CALCIUM [Concomitant]
     Route: 048
  5. VITAMIN E [Concomitant]
     Route: 048
  6. AMLOD/BENAZP [Concomitant]
     Indication: HYPERTENSION
     Route: 048
  7. SERTRALINE [Concomitant]
     Indication: TENSION HEADACHE
     Dosage: 25 MG
     Route: 048

REACTIONS (4)
  - Fall [Recovered/Resolved]
  - Syncope [Recovered/Resolved]
  - Neck pain [Not Recovered/Not Resolved]
  - Musculoskeletal pain [Not Recovered/Not Resolved]
